FAERS Safety Report 12486411 (Version 1)
Quarter: 2016Q2

REPORT INFORMATION
  Report Type: Spontaneous
  Country: US (occurrence: US)
  Receive Date: 20160621
  Receipt Date: 20160621
  Transmission Date: 20160815
  Serious: No
  Sender: FDA-Public Use
  Company Number: US-PFIZER INC-2015450638

PATIENT
  Age: 82 Year
  Sex: Male
  Weight: 100.7 kg

DRUGS (3)
  1. ROBITUSSIN MAXIMUM STRENGTH COUGH [Suspect]
     Active Substance: DEXTROMETHORPHAN HYDROBROMIDE
     Indication: COUGH
  2. ROBITUSSIN MAXIMUM STRENGTH COUGH [Suspect]
     Active Substance: DEXTROMETHORPHAN HYDROBROMIDE
     Indication: CHEST DISCOMFORT
  3. ZITHROMAX [Suspect]
     Active Substance: AZITHROMYCIN DIHYDRATE

REACTIONS (1)
  - Drug ineffective [Unknown]
